FAERS Safety Report 7472959-X (Version None)
Quarter: 2011Q2

REPORT INFORMATION
  Report Type: 
  Country: None (occurrence: None)
  Receive Date: 20110503
  Receipt Date: 20110418
  Transmission Date: 20111010
  Serious: Yes (Hospitalization)
  Sender: FDA-Public Use
  Company Number: 017274

PATIENT
  Sex: Male
  Weight: 88.5 kg

DRUGS (10)
  1. NYSTATIN [Concomitant]
  2. REMICADE [Suspect]
     Indication: CROHN'S DISEASE
     Dosage: 5 MG/KG INTRAVENOUS (NOT OTHERWISE SPECIFIED), 10 MG/KG, QD
     Dates: start: 20030828, end: 20050210
  3. REMICADE [Suspect]
     Indication: CROHN'S DISEASE
     Dosage: 5 MG/KG INTRAVENOUS (NOT OTHERWISE SPECIFIED), 10 MG/KG, QD
     Dates: start: 20050331, end: 20071217
  4. PERCOCET [Concomitant]
  5. PROTONIX [Concomitant]
  6. PROPECIA [Concomitant]
  7. CIMZIA [Suspect]
     Indication: CROHN'S DISEASE
     Dosage: SUBCUTANEOUS; 400 MG 1X/2 WEEKS SUBCUTANEOUS; 400 MG 1X/MONTH SUBCUTANEOUS;
     Route: 058
     Dates: start: 20090605, end: 20090601
  8. CIMZIA [Suspect]
     Indication: CROHN'S DISEASE
     Dosage: SUBCUTANEOUS; 400 MG 1X/2 WEEKS SUBCUTANEOUS; 400 MG 1X/MONTH SUBCUTANEOUS;
     Route: 058
     Dates: start: 20090910
  9. CIMZIA [Suspect]
     Indication: CROHN'S DISEASE
     Dosage: SUBCUTANEOUS; 400 MG 1X/2 WEEKS SUBCUTANEOUS; 400 MG 1X/MONTH SUBCUTANEOUS;
     Route: 058
     Dates: start: 20090616, end: 20090630
  10. FERROUS SULFATE TAB [Concomitant]

REACTIONS (5)
  - CHOLANGITIS SCLEROSING [None]
  - HAEMATOCHEZIA [None]
  - CHILLS [None]
  - PYREXIA [None]
  - ABDOMINAL PAIN [None]
